FAERS Safety Report 13530167 (Version 3)
Quarter: 2020Q2

REPORT INFORMATION
  Report Type: Spontaneous
  Country: US (occurrence: US)
  Receive Date: 20170509
  Receipt Date: 20200402
  Transmission Date: 20200713
  Serious: No
  Sender: FDA-Public Use
  Company Number: US-UCBSA-2016040392

PATIENT
  Sex: Female
  Weight: 150 kg

DRUGS (1)
  1. NEUPRO [Suspect]
     Active Substance: ROTIGOTINE
     Indication: RESTLESS LEGS SYNDROME
     Dosage: 4 MG, ONCE DAILY (QD)
     Dates: start: 201506

REACTIONS (5)
  - Off label use [Unknown]
  - Product adhesion issue [Unknown]
  - Restless legs syndrome [Recovered/Resolved]
  - Product quality issue [Unknown]
  - Overdose [Unknown]
